FAERS Safety Report 14525670 (Version 5)
Quarter: 2018Q2

REPORT INFORMATION
  Report Type: Spontaneous
  Country: FR (occurrence: FR)
  Receive Date: 20180213
  Receipt Date: 20180411
  Transmission Date: 20180711
  Serious: Yes (Hospitalization, Other)
  Sender: FDA-Public Use
  Company Number: FR-AUROBINDO-AUR-APL-2018-006778

PATIENT
  Age: 74 Year
  Sex: Female

DRUGS (39)
  1. APIXABAN [Suspect]
     Active Substance: APIXABAN
     Dosage: UNK ()
     Route: 065
  2. RANITIDINE. [Concomitant]
     Active Substance: RANITIDINE
     Dosage: 150 MG, DAILY
     Route: 048
  3. BISOCE [Concomitant]
     Active Substance: BISOPROLOL
     Dosage: 5 MG, QD
     Route: 048
  4. BISOCE [Concomitant]
     Active Substance: BISOPROLOL
     Dosage: 5 MG, QD
     Route: 048
  5. DISCOTRINE [Concomitant]
     Active Substance: NITROGLYCERIN
     Dosage: 10 MG, DAILY
     Route: 050
  6. DISCOTRINE [Concomitant]
     Active Substance: NITROGLYCERIN
     Dosage: 10 MG, DAILY
     Route: 050
  7. RANITIDINE. [Concomitant]
     Active Substance: RANITIDINE
     Dosage: 150 MG, QD
     Route: 048
  8. BISOCE [Concomitant]
     Active Substance: BISOPROLOL
     Dosage: UNK ()
     Route: 065
  9. BISOCE [Concomitant]
     Active Substance: BISOPROLOL
     Dosage: UNK ()
     Route: 065
  10. DISCOTRINE [Concomitant]
     Active Substance: NITROGLYCERIN
     Dosage: 10 MG, DAILY
     Route: 050
  11. DISCOTRINE [Concomitant]
     Active Substance: NITROGLYCERIN
     Dosage: 10 MG, QD
     Route: 050
  12. DISCOTRINE [Concomitant]
     Active Substance: NITROGLYCERIN
     Dosage: 10 MG, DAILY
     Route: 050
  13. ATORVASTATIN [Suspect]
     Active Substance: ATORVASTATIN
     Indication: HYPERCHOLESTEROLAEMIA
     Dosage: 40 MG, DAILY
     Route: 048
  14. APIXABAN [Suspect]
     Active Substance: APIXABAN
     Dosage: UNK ()
     Route: 065
  15. RANITIDINE. [Concomitant]
     Active Substance: RANITIDINE
     Dosage: 150 MG, DAILY
     Route: 048
  16. BISOCE [Concomitant]
     Active Substance: BISOPROLOL
     Dosage: 5 MG, QD
     Route: 048
  17. PERINDOPRIL TABLET [Suspect]
     Active Substance: PERINDOPRIL
     Indication: PROPHYLAXIS
     Dosage: 4 MG, DAILY
     Route: 048
  18. APIXABAN [Suspect]
     Active Substance: APIXABAN
     Dosage: UNK ()
     Route: 065
  19. RANITIDINE. [Concomitant]
     Active Substance: RANITIDINE
     Dosage: 150 MG, DAILY
     Route: 048
  20. RANITIDINE. [Concomitant]
     Active Substance: RANITIDINE
     Dosage: 150 MG, DAILY
     Route: 048
  21. BISOCE [Concomitant]
     Active Substance: BISOPROLOL
     Indication: PROPHYLAXIS
     Dosage: 5 MG, DAILY
     Route: 048
  22. DISCOTRINE [Concomitant]
     Active Substance: NITROGLYCERIN
     Dosage: 10 MG, DAILY
     Route: 050
  23. DISCOTRINE [Concomitant]
     Active Substance: NITROGLYCERIN
     Dosage: UNK ()
     Route: 065
  24. APIXABAN [Suspect]
     Active Substance: APIXABAN
     Dosage: UNK ()
     Route: 065
  25. APIXABAN [Suspect]
     Active Substance: APIXABAN
     Dosage: UNK ()
     Route: 065
  26. DISCOTRINE [Concomitant]
     Active Substance: NITROGLYCERIN
     Dosage: UNK ()
     Route: 065
  27. DISCOTRINE [Concomitant]
     Active Substance: NITROGLYCERIN
     Dosage: 10 MG, DAILY
     Route: 050
  28. APIXABAN [Suspect]
     Active Substance: APIXABAN
     Indication: PRODUCT USED FOR UNKNOWN INDICATION
     Dosage: 10 MG, DAILY
     Route: 048
     Dates: start: 20170316
  29. APIXABAN [Suspect]
     Active Substance: APIXABAN
     Dosage: UNK ()
     Route: 065
  30. BISOCE [Concomitant]
     Active Substance: BISOPROLOL
     Dosage: 5 MG, QD
     Route: 048
  31. BISOCE [Concomitant]
     Active Substance: BISOPROLOL
     Dosage: 5 MG, QD
     Route: 048
  32. APIXABAN [Suspect]
     Active Substance: APIXABAN
     Dosage: UNK ()
     Route: 065
  33. RANITIDINE. [Concomitant]
     Active Substance: RANITIDINE
     Indication: PROPHYLAXIS AGAINST GASTROINTESTINAL ULCER
     Dosage: 150 MG, DAILY
     Route: 048
  34. RANITIDINE. [Concomitant]
     Active Substance: RANITIDINE
     Dosage: 150 MG, DAILY
     Route: 048
  35. RANITIDINE. [Concomitant]
     Active Substance: RANITIDINE
     Dosage: 150 MG, DAILY
     Route: 048
  36. BISOCE [Concomitant]
     Active Substance: BISOPROLOL
     Dosage: 5 MG, QD
     Route: 048
  37. DISCOTRINE [Concomitant]
     Active Substance: NITROGLYCERIN
     Indication: PROPHYLAXIS
     Dosage: 10 MG, DAILY
     Route: 050
  38. DISCOTRINE [Concomitant]
     Active Substance: NITROGLYCERIN
     Dosage: UNK ()
     Route: 065
  39. BISOCE [Concomitant]
     Active Substance: BISOPROLOL
     Dosage: 5 MG, QD
     Route: 048

REACTIONS (2)
  - Infective spondylitis [Recovered/Resolved]
  - Streptococcal infection [Recovered/Resolved]

NARRATIVE: CASE EVENT DATE: 20170702
